FAERS Safety Report 4414447-0 (Version None)
Quarter: 2004Q3

REPORT INFORMATION
  Report Type: 
  Country: None (occurrence: None)
  Receive Date: 20040701
  Receipt Date: 20040405
  Transmission Date: 20050211
  Serious: Yes (Other)
  Sender: FDA-Public Use
  Company Number: 200417520BWH

PATIENT
  Age: 78 Year
  Sex: Male

DRUGS (3)
  1. AVELOX [Suspect]
     Dosage: 400 MG, TOTAL DAILY, INTRAVENOUS
     Route: 042
  2. CASODEX [Concomitant]
  3. DIGOXIN [Concomitant]

REACTIONS (2)
  - CONFUSIONAL STATE [None]
  - PSYCHOTIC DISORDER [None]
